FAERS Safety Report 5080999-3 (Version None)
Quarter: 2006Q3

REPORT INFORMATION
  Report Type: 
  Country: None (occurrence: None)
  Receive Date: 20060816
  Receipt Date: 20060808
  Transmission Date: 20061208
  Serious: Yes (Hospitalization, Other)
  Sender: FDA-Public Use
  Company Number: PHFR2006GB02459

PATIENT

DRUGS (1)
  1. CLOZAPINE [Suspect]
     Route: 048

REACTIONS (5)
  - BLOOD CREATININE INCREASED [None]
  - FALL [None]
  - MUSCLE ATROPHY [None]
  - RENAL FAILURE [None]
  - RHABDOMYOLYSIS [None]
